FAERS Safety Report 12280309 (Version 1)
Quarter: 2016Q2

REPORT INFORMATION
  Report Type: Spontaneous
  Country: US (occurrence: US)
  Receive Date: 20160419
  Receipt Date: 20160419
  Transmission Date: 20160815
  Serious: No
  Sender: FDA-Public Use
  Company Number: US-HORIZON-PRE-0120-2016

PATIENT

DRUGS (1)
  1. RAYOS [Suspect]
     Active Substance: PREDNISONE
     Indication: REPRODUCTIVE TRACT DISORDER
     Dosage: 10 MG WAS INCREASED TO 20 MG AT BEDTIME

REACTIONS (3)
  - Insomnia [Unknown]
  - Off label use [Unknown]
  - Headache [Unknown]
